APPROVED DRUG PRODUCT: CHLORZOXAZONE
Active Ingredient: CHLORZOXAZONE
Strength: 250MG
Dosage Form/Route: TABLET;ORAL
Application: A088928 | Product #001
Applicant: ACTAVIS ELIZABETH LLC
Approved: May 8, 1987 | RLD: No | RS: No | Type: DISCN